FAERS Safety Report 10468462 (Version 1)
Quarter: 2014Q3

REPORT INFORMATION
  Report Type: Spontaneous
  Country: US (occurrence: US)
  Receive Date: 20140922
  Receipt Date: 20140922
  Transmission Date: 20150326
  Serious: No
  Sender: FDA-Public Use
  Company Number: US-ALLERGAN-1316577US

PATIENT
  Age: 76 Year
  Sex: Female

DRUGS (3)
  1. LASTACAFT [Suspect]
     Active Substance: ALCAFTADINE
     Indication: HYPERSENSITIVITY
     Dosage: 2 GTT, UNK
     Route: 047
     Dates: start: 20131007
  2. OASIS TEARS [Concomitant]
     Active Substance: GLYCERIN
     Indication: PRODUCT USED FOR UNKNOWN INDICATION
  3. TRAVATAN Z [Concomitant]
     Active Substance: TRAVOPROST
     Indication: PRODUCT USED FOR UNKNOWN INDICATION

REACTIONS (1)
  - Somnolence [Recovered/Resolved]
